FAERS Safety Report 9071038 (Version 1)
Quarter: 2013Q1

REPORT INFORMATION
  Report Type: Report from Study
  Country: PR (occurrence: PR)
  Receive Date: 20130129
  Receipt Date: 20130129
  Transmission Date: 20140127
  Serious: No
  Sender: FDA-Public Use
  Company Number: PR-ABBOTT-12P-131-0917690-00

PATIENT
  Age: 50 None
  Sex: Female
  Weight: 86.26 kg

DRUGS (4)
  1. HUMIRA 40 MG/0.8 ML PEN [Suspect]
     Indication: RHEUMATOID ARTHRITIS
     Route: 058
     Dates: start: 2011, end: 201203
  2. HUMIRA 40 MG/0.8 ML PEN [Suspect]
     Route: 058
     Dates: start: 201203, end: 201204
  3. DIOVAN [Concomitant]
     Indication: HYPERTENSION
     Dosage: 160/12.5 MG-1 TABLET DAILY
     Route: 048
  4. COUMADIN [Concomitant]
     Indication: THROMBOPHLEBITIS
     Dosage: 1 TABLET DAILY
     Route: 048

REACTIONS (7)
  - Nasopharyngitis [Recovered/Resolved]
  - Injection site reaction [Recovered/Resolved]
  - Injection site erythema [Recovered/Resolved]
  - Injection site pain [Recovered/Resolved]
  - Injection site reaction [Recovered/Resolved]
  - Injection site erythema [Recovered/Resolved]
  - Injection site pain [Recovered/Resolved]
